FAERS Safety Report 8796452 (Version 1)
Quarter: 2012Q4

REPORT INFORMATION
  Report Type: 
  Country: CM (occurrence: CM)
  Receive Date: 20120919
  Receipt Date: 20120919
  Transmission Date: 20130627
  Serious: Yes (Other)
  Sender: FDA-Public Use
  Company Number: PHHY2005CM007694

PATIENT
  Sex: Female

DRUGS (1)
  1. GLIVEC [Suspect]
     Dosage: 400 mg, Daily
     Dates: start: 20040909

REACTIONS (3)
  - Haematotoxicity [Unknown]
  - Thrombocytopenia [Unknown]
  - Neutropenia [Unknown]
